FAERS Safety Report 24673418 (Version 3)
Quarter: 2024Q4

REPORT INFORMATION
  Report Type: Report from Study
  Country: CO (occurrence: CO)
  Receive Date: 20241128
  Receipt Date: 20241231
  Transmission Date: 20250115
  Serious: Yes (Other)
  Sender: GLAXOSMITHKLINE
  Company Number: CO-GLAXOSMITHKLINE INC-CO2024AMR146886

PATIENT

DRUGS (2)
  1. BELIMUMAB [Suspect]
     Active Substance: BELIMUMAB
     Indication: Systemic lupus erythematosus
     Dosage: 620 MG, MO
     Route: 042
     Dates: start: 20200710, end: 20241007
  2. BELIMUMAB [Suspect]
     Active Substance: BELIMUMAB
     Dosage: 620 MG, MO
     Route: 042
     Dates: start: 20200710, end: 20241007

REACTIONS (9)
  - Pterygium operation [Recovering/Resolving]
  - Ocular hyperaemia [Not Recovered/Not Resolved]
  - Headache [Not Recovered/Not Resolved]
  - Blood cholesterol increased [Not Recovered/Not Resolved]
  - Vitamin D abnormal [Not Recovered/Not Resolved]
  - Asthenia [Unknown]
  - Influenza like illness [Not Recovered/Not Resolved]
  - Haematoma [Not Recovered/Not Resolved]
  - Peroneal nerve injury [Not Recovered/Not Resolved]

NARRATIVE: CASE EVENT DATE: 20241115
